FAERS Safety Report 24868622 (Version 1)
Quarter: 2025Q1

REPORT INFORMATION
  Report Type: Report from Study
  Country: CA (occurrence: CA)
  Receive Date: 20250121
  Receipt Date: 20250121
  Transmission Date: 20250408
  Serious: Yes (Hospitalization, Other)
  Sender: JOHNSON AND JOHNSON
  Company Number: CA-JNJFOC-20221135259

PATIENT
  Age: 57 Year
  Sex: Female

DRUGS (14)
  1. REMICADE [Suspect]
     Active Substance: INFLIXIMAB
     Indication: Crohn^s disease
     Dosage: THERAPY START DATE WAS ALSO REPORTED AS -01-MAR-2013
     Route: 041
     Dates: start: 20120901
  2. REMICADE [Suspect]
     Active Substance: INFLIXIMAB
     Route: 041
     Dates: start: 20221107
  3. REMICADE [Suspect]
     Active Substance: INFLIXIMAB
     Dosage: UNIT DOSE -450 MG
     Route: 041
     Dates: start: 20121126
  4. REMICADE [Suspect]
     Active Substance: INFLIXIMAB
     Route: 041
     Dates: start: 20120926
  5. REMICADE [Suspect]
     Active Substance: INFLIXIMAB
     Route: 041
     Dates: start: 20120926
  6. REMICADE [Suspect]
     Active Substance: INFLIXIMAB
     Route: 041
  7. SEROQUEL [Concomitant]
     Active Substance: QUETIAPINE FUMARATE
     Indication: Poor quality sleep
     Route: 048
  8. ESCITALOPRAM [Concomitant]
     Active Substance: ESCITALOPRAM OXALATE
     Indication: Product used for unknown indication
     Dosage: FREQUENCY 1?UNIT DOSE -20 (UNIT NOT REPORTED)
     Route: 048
  9. LORAZEPAM [Concomitant]
     Active Substance: LORAZEPAM
     Indication: Product used for unknown indication
     Route: 065
  10. DEXLANSOPRAZOLE [Concomitant]
     Active Substance: DEXLANSOPRAZOLE
     Indication: Product used for unknown indication
     Route: 065
  11. SYMBICORT [Concomitant]
     Active Substance: BUDESONIDE\FORMOTEROL FUMARATE DIHYDRATE
     Indication: Product used for unknown indication
     Route: 065
  12. SYMBICORT [Concomitant]
     Active Substance: BUDESONIDE\FORMOTEROL FUMARATE DIHYDRATE
     Route: 065
  13. CYANOCOBALAMIN [Concomitant]
     Active Substance: CYANOCOBALAMIN
     Indication: Product used for unknown indication
     Dosage: VITAMIN B12
     Route: 065
  14. MINERALS\VITAMINS [Concomitant]
     Active Substance: MINERALS\VITAMINS
     Indication: Product used for unknown indication
     Route: 065

REACTIONS (10)
  - Gastrointestinal scarring [Unknown]
  - Crohn^s disease [Recovered/Resolved]
  - Biopsy cervix [Unknown]
  - Intestinal obstruction [Recovered/Resolved]
  - Device related infection [Recovered/Resolved]
  - Intestinal perforation [Recovered/Resolved]
  - Papilloma viral infection [Recovered/Resolved]
  - Procedural pain [Unknown]
  - Inappropriate schedule of product administration [Unknown]
  - Vaginal odour [Unknown]

NARRATIVE: CASE EVENT DATE: 20220101
